FAERS Safety Report 10051093 (Version 2)
Quarter: 2014Q2

REPORT INFORMATION
  Report Type: Spontaneous
  Country: NL (occurrence: NL)
  Receive Date: 20140401
  Receipt Date: 20140404
  Transmission Date: 20141212
  Serious: Yes (Hospitalization)
  Sender: FDA-Public Use
  Company Number: NL-PFIZER INC-2014089392

PATIENT
  Age: 55 Year
  Sex: Female
  Weight: 62.1 kg

DRUGS (9)
  1. CHAMPIX [Suspect]
     Dosage: UNK
     Dates: start: 20140320, end: 20140327
  2. ASCAL [Concomitant]
     Dosage: UNK
  3. BISOPROLOL [Concomitant]
     Dosage: UNK
  4. LANTUS [Concomitant]
     Dosage: UNK
  5. NEXIUM [Concomitant]
     Dosage: UNK
  6. NOVORAPID [Concomitant]
     Dosage: UNK
  7. PANZYTRAT [Concomitant]
     Dosage: UNK
  8. PERINDOPRIL [Concomitant]
     Dosage: UNK
  9. SIMVASTATIN [Concomitant]
     Dosage: UNK

REACTIONS (4)
  - Constipation [Not Recovered/Not Resolved]
  - Faeces discoloured [Not Recovered/Not Resolved]
  - Headache [Not Recovered/Not Resolved]
  - Nausea [Not Recovered/Not Resolved]
